FAERS Safety Report 4527160-6 (Version None)
Quarter: 2004Q4

REPORT INFORMATION
  Report Type: 
  Country: None (occurrence: None)
  Receive Date: 20041126
  Receipt Date: 20040709
  Transmission Date: 20050328
  Serious: Yes (Other)
  Sender: FDA-Public Use
  Company Number: 2003162103US

PATIENT
  Age: 42 Year
  Sex: Male

DRUGS (4)
  1. ZYVOX [Suspect]
     Indication: POSTOPERATIVE INFECTION
     Dosage: 400 MG, BID
  2. ZYVOX [Suspect]
     Dosage: 600 MG, BID, ORAL
     Route: 048
     Dates: start: 20020101
  3. METOPROLOL TARTRATE [Concomitant]
  4. ACETAMINOPHEN W/ CODEINE [Concomitant]

REACTIONS (1)
  - NEUROPATHY PERIPHERAL [None]
